FAERS Safety Report 25709118 (Version 1)
Quarter: 2025Q3

REPORT INFORMATION
  Report Type: Spontaneous
  Country: KR (occurrence: KR)
  Receive Date: 20250821
  Receipt Date: 20250821
  Transmission Date: 20251021
  Serious: Yes (Hospitalization)
  Sender: Unknown Manufacturer
  Company Number: KR-CORZA MEDICAL GMBH-2025-KR-002316

PATIENT
  Age: 67 Year
  Sex: Male

DRUGS (1)
  1. TACHOSIL [Suspect]
     Active Substance: FIBRINOGEN HUMAN\HUMAN THROMBIN
     Indication: Haemostasis
     Route: 065

REACTIONS (1)
  - Haematoma [Recovered/Resolved]
